FAERS Safety Report 6312279-X (Version None)
Quarter: 2009Q3

REPORT INFORMATION
  Report Type: 
  Country: None (occurrence: None)
  Receive Date: 20090813
  Receipt Date: 20090728
  Transmission Date: 20100115
  Serious: Yes (Other)
  Sender: FDA-Public Use
  Company Number: 2009-198969-NL

PATIENT
  Age: 26 Year
  Sex: Female

DRUGS (4)
  1. NUVARING [Suspect]
     Indication: CONTRACEPTION
     Dosage: VAG
     Route: 067
     Dates: start: 20081101
  2. HAVRIX [Concomitant]
  3. STAMARIL [Concomitant]
  4. MALARONE [Concomitant]

REACTIONS (2)
  - OPTIC NEURITIS [None]
  - STRABISMUS [None]
